FAERS Safety Report 7542412-3 (Version None)
Quarter: 2011Q2

REPORT INFORMATION
  Report Type: 
  Country: None (occurrence: None)
  Receive Date: 20110613
  Receipt Date: 20110602
  Transmission Date: 20111010
  Serious: No
  Sender: FDA-Public Use
  Company Number: BR-ASTRAZENECA-2011SE01450

PATIENT
  Age: 77 Year
  Sex: Male
  Weight: 50 kg

DRUGS (11)
  1. GALANTAMINE HYDROBROMIDE [Concomitant]
     Indication: DEMENTIA ALZHEIMER'S TYPE
     Route: 048
  2. SEROQUEL [Suspect]
     Indication: DEMENTIA ALZHEIMER'S TYPE
     Dosage: HALF TABLET BID
     Route: 048
     Dates: start: 20070101, end: 20110102
  3. SEROQUEL [Suspect]
     Route: 048
     Dates: start: 20110102
  4. EPREX [Concomitant]
     Indication: ANAEMIA
     Route: 058
  5. SIGMATRIOL [Concomitant]
     Indication: RENAL DISORDER
     Route: 048
  6. SIMVASTATIN [Concomitant]
     Indication: HYPERCHOLESTEROLAEMIA
     Route: 048
  7. AMLOVASC [Concomitant]
     Route: 048
  8. CLONAZEPAM [Concomitant]
     Route: 048
     Dates: start: 20090101
  9. COUMADIN [Concomitant]
     Indication: ANTICOAGULANT THERAPY
     Route: 048
     Dates: start: 20020101
  10. ALLOPURINOL [Concomitant]
     Indication: RENAL DISORDER
     Route: 048
  11. CALCIOLIT [Concomitant]
     Indication: RENAL DISORDER
     Route: 048

REACTIONS (2)
  - MEDICATION ERROR [None]
  - DRUG ABUSE [None]
